FAERS Safety Report 26073580 (Version 1)
Quarter: 2025Q4

REPORT INFORMATION
  Report Type: Report from Study
  Country: CN (occurrence: CN)
  Receive Date: 20251121
  Receipt Date: 20251121
  Transmission Date: 20260118
  Serious: Yes (Other)
  Sender: ROCHE
  Company Number: CN-ROCHE-10000433272

PATIENT
  Age: 51 Year
  Sex: Female

DRUGS (1)
  1. TECENTRIQ [Suspect]
     Active Substance: ATEZOLIZUMAB
     Indication: Non-small cell lung cancer
     Route: 065
     Dates: start: 202503

REACTIONS (5)
  - Abdominal distension [Unknown]
  - Decreased appetite [Unknown]
  - Back pain [Unknown]
  - Movement disorder [Unknown]
  - Metastases to bone [Unknown]

NARRATIVE: CASE EVENT DATE: 20251001
